FAERS Safety Report 23445769 (Version 1)
Quarter: 2024Q1

REPORT INFORMATION
  Report Type: Spontaneous
  Country: IN (occurrence: IN)
  Receive Date: 20240126
  Receipt Date: 20240126
  Transmission Date: 20240409
  Serious: Yes (Other)
  Sender: FDA-Public Use
  Company Number: IN-EPICPHARMA-IN-2024EPCLIT00138

PATIENT
  Age: 42 Year
  Sex: Male

DRUGS (2)
  1. TRIAMCINOLONE ACETONIDE [Suspect]
     Active Substance: TRIAMCINOLONE ACETONIDE
     Indication: Visual acuity reduced
     Route: 035
  2. TRIAMCINOLONE ACETONIDE [Suspect]
     Active Substance: TRIAMCINOLONE ACETONIDE
     Indication: Ocular hyperaemia

REACTIONS (5)
  - Blindness [Unknown]
  - Open globe injury [Unknown]
  - Vitreous opacities [Unknown]
  - Product use in unapproved indication [Unknown]
  - Product use issue [Unknown]
